FAERS Safety Report 10229962 (Version 4)
Quarter: 2014Q2

REPORT INFORMATION
  Report Type: Report from Study
  Country: GB (occurrence: GB)
  Receive Date: 20140611
  Receipt Date: 20140623
  Transmission Date: 20141212
  Serious: Yes (Hospitalization)
  Sender: FDA-Public Use
  Company Number: GB-VERTEX PHARMACEUTICALS (CANADA)-2014-002001

PATIENT
  Age: 60 Year
  Sex: Male

DRUGS (3)
  1. TELAPREVIR [Suspect]
     Indication: HEPATITIS C
     Dosage: 1125 MG, BID
     Route: 048
     Dates: start: 20140411, end: 20140502
  2. PEG INTERFERON [Suspect]
     Indication: HEPATITIS C
     Dosage: 1 UNK, QW
     Route: 058
     Dates: start: 20140411
  3. RIBAVIRIN [Suspect]
     Indication: HEPATITIS C
     Dosage: UNK UNK, BID
     Route: 048
     Dates: start: 20140411

REACTIONS (13)
  - Joint swelling [Not Recovered/Not Resolved]
  - Myocardial infarction [Unknown]
  - Pulmonary oedema [Not Recovered/Not Resolved]
  - Blood count abnormal [Unknown]
  - General physical health deterioration [Unknown]
  - Peripheral swelling [Unknown]
  - Muscle spasms [Not Recovered/Not Resolved]
  - Myalgia [Not Recovered/Not Resolved]
  - Furuncle [Not Recovered/Not Resolved]
  - Fatigue [Not Recovered/Not Resolved]
  - Pruritus [Not Recovered/Not Resolved]
  - Proctalgia [Not Recovered/Not Resolved]
  - Haemorrhoids [Unknown]
